FAERS Safety Report 12219604 (Version 1)
Quarter: 2016Q1

REPORT INFORMATION
  Report Type: Spontaneous
  Country: TW (occurrence: TW)
  Receive Date: 20160329
  Receipt Date: 20160329
  Transmission Date: 20160526
  Serious: Yes (Other)
  Sender: FDA-Public Use
  Company Number: TW-ROCHE-1731567

PATIENT
  Age: 46 Year
  Sex: Female
  Weight: 45 kg

DRUGS (36)
  1. PREDNISOLONE. [Concomitant]
     Active Substance: PREDNISOLONE
     Route: 065
     Dates: start: 20130712, end: 20130808
  2. PREDNISOLONE. [Concomitant]
     Active Substance: PREDNISOLONE
     Route: 065
     Dates: start: 20130823, end: 20130920
  3. PROGRAF [Concomitant]
     Active Substance: TACROLIMUS\TACROLIMUS ANHYDROUS
     Route: 065
     Dates: start: 20131115, end: 20140109
  4. PROGRAF [Concomitant]
     Active Substance: TACROLIMUS\TACROLIMUS ANHYDROUS
     Route: 065
     Dates: start: 20150108
  5. ADVAGRAF [Concomitant]
     Active Substance: TACROLIMUS
     Route: 065
     Dates: start: 20150525, end: 20150719
  6. ADVAGRAF [Concomitant]
     Active Substance: TACROLIMUS
     Route: 065
     Dates: start: 20160220
  7. CERTICAN [Concomitant]
     Active Substance: EVEROLIMUS
     Route: 065
     Dates: start: 20140918, end: 20141112
  8. CERTICAN [Concomitant]
     Active Substance: EVEROLIMUS
     Route: 065
     Dates: start: 20141113, end: 20151206
  9. CERTICAN [Concomitant]
     Active Substance: EVEROLIMUS
     Route: 065
     Dates: start: 20160201
  10. SULFAMETHOXAZOLE [Suspect]
     Active Substance: SULFAMETHOXAZOLE
     Indication: PULMONARY TUBERCULOSIS
     Route: 065
     Dates: start: 20130622, end: 20131018
  11. PREDNISOLONE. [Concomitant]
     Active Substance: PREDNISOLONE
     Route: 065
     Dates: start: 201602, end: 201602
  12. ADVAGRAF [Concomitant]
     Active Substance: TACROLIMUS
     Route: 065
     Dates: start: 20140403, end: 20140625
  13. ADVAGRAF [Concomitant]
     Active Substance: TACROLIMUS
     Route: 065
     Dates: start: 20160218, end: 20160219
  14. CELLCEPT [Suspect]
     Active Substance: MYCOPHENOLATE MOFETIL\MYCOPHENOLATE MOFETIL HYDROCHLORIDE
     Route: 065
     Dates: start: 20140110, end: 20140917
  15. ADVAGRAF [Concomitant]
     Active Substance: TACROLIMUS
     Route: 065
     Dates: start: 20150720, end: 20160217
  16. VALCYTE [Suspect]
     Active Substance: VALGANCICLOVIR HYDROCHLORIDE
     Indication: PRODUCT USED FOR UNKNOWN INDICATION
     Route: 065
     Dates: start: 2013, end: 20131018
  17. PREDNISOLONE. [Concomitant]
     Active Substance: PREDNISOLONE
     Route: 065
     Dates: start: 20130809, end: 20130822
  18. PREDNISOLONE. [Concomitant]
     Active Substance: PREDNISOLONE
     Route: 065
     Dates: start: 2015, end: 2015
  19. PROGRAF [Concomitant]
     Active Substance: TACROLIMUS\TACROLIMUS ANHYDROUS
     Route: 065
     Dates: start: 20160201
  20. CERTICAN [Concomitant]
     Active Substance: EVEROLIMUS
     Route: 065
     Dates: start: 20140110, end: 20140209
  21. ADVAGRAF [Concomitant]
     Active Substance: TACROLIMUS
     Route: 065
     Dates: start: 20130920, end: 20140402
  22. CERTICAN [Concomitant]
     Active Substance: EVEROLIMUS
     Route: 065
     Dates: start: 20140210, end: 20140917
  23. CELLCEPT [Suspect]
     Active Substance: MYCOPHENOLATE MOFETIL\MYCOPHENOLATE MOFETIL HYDROCHLORIDE
     Indication: PROPHYLAXIS AGAINST TRANSPLANT REJECTION
     Route: 065
     Dates: start: 20130622, end: 20140109
  24. CELLCEPT [Suspect]
     Active Substance: MYCOPHENOLATE MOFETIL\MYCOPHENOLATE MOFETIL HYDROCHLORIDE
     Route: 065
     Dates: start: 20140918
  25. TRIMETHOPRIM. [Suspect]
     Active Substance: TRIMETHOPRIM
     Indication: PULMONARY TUBERCULOSIS
     Route: 065
     Dates: start: 20130622, end: 20131018
  26. PREDNISOLONE. [Concomitant]
     Active Substance: PREDNISOLONE
     Route: 065
     Dates: start: 201512, end: 201602
  27. PROGRAF [Concomitant]
     Active Substance: TACROLIMUS\TACROLIMUS ANHYDROUS
     Indication: PROPHYLAXIS AGAINST TRANSPLANT REJECTION
     Route: 065
     Dates: start: 20130622, end: 20130808
  28. PROGRAF [Concomitant]
     Active Substance: TACROLIMUS\TACROLIMUS ANHYDROUS
     Route: 065
     Dates: start: 20130809, end: 20130823
  29. CERTICAN [Concomitant]
     Active Substance: EVEROLIMUS
     Route: 065
     Dates: start: 20151207, end: 20160131
  30. PREDNISOLONE. [Concomitant]
     Active Substance: PREDNISOLONE
     Indication: PROPHYLAXIS AGAINST TRANSPLANT REJECTION
     Route: 065
     Dates: start: 20130622, end: 20130711
  31. PREDNISOLONE. [Concomitant]
     Active Substance: PREDNISOLONE
     Route: 065
     Dates: start: 201602, end: 20160220
  32. ADVAGRAF [Concomitant]
     Active Substance: TACROLIMUS
     Route: 065
     Dates: start: 20130823, end: 20130919
  33. ADVAGRAF [Concomitant]
     Active Substance: TACROLIMUS
     Route: 065
     Dates: start: 20140626, end: 20150524
  34. PROGRAF [Concomitant]
     Active Substance: TACROLIMUS\TACROLIMUS ANHYDROUS
     Route: 065
     Dates: start: 20140110, end: 20140403
  35. PROGRAF [Concomitant]
     Active Substance: TACROLIMUS\TACROLIMUS ANHYDROUS
     Route: 065
     Dates: start: 20140918, end: 20150107
  36. PROGRAF [Concomitant]
     Active Substance: TACROLIMUS\TACROLIMUS ANHYDROUS
     Route: 065
     Dates: start: 20150907

REACTIONS (1)
  - Transplant rejection [Unknown]
